FAERS Safety Report 9678159 (Version 1)
Quarter: 2013Q4

REPORT INFORMATION
  Report Type: Spontaneous
  Country: ES (occurrence: ES)
  Receive Date: 20131108
  Receipt Date: 20131108
  Transmission Date: 20140711
  Serious: Yes (Other)
  Sender: FDA-Public Use
  Company Number: ES-ACTAVIS-2013-20324

PATIENT
  Age: 74 Year
  Sex: Male
  Weight: 84 kg

DRUGS (2)
  1. DOCETAXEL ACTAVIS [Suspect]
     Indication: NEOPLASM PROSTATE
     Dosage: 71 MG, UNKNOWN; 20 MG/ML
     Route: 042
     Dates: start: 20130726
  2. CARBOPLATIN TEVA [Concomitant]
     Indication: NEOPLASM PROSTATE
     Dosage: 370 MG, UNK; 10 MG/ML
     Route: 042
     Dates: start: 20130726

REACTIONS (1)
  - Renal pain [Recovered/Resolved]
